FAERS Safety Report 24414772 (Version 1)
Quarter: 2024Q4

REPORT INFORMATION
  Report Type: Report from Study
  Country: CA (occurrence: CA)
  Receive Date: 20241009
  Receipt Date: 20241009
  Transmission Date: 20250114
  Serious: Yes (Death, Other)
  Sender: CSL BEHRING
  Company Number: CA-BEH-2023162152

PATIENT
  Age: 72 Year
  Sex: Male
  Weight: 95 kg

DRUGS (10)
  1. HIZENTRA [Suspect]
     Active Substance: HUMAN IMMUNOGLOBULIN G
     Indication: Myasthenia gravis
     Dosage: 12 GRAM, QW
     Route: 065
     Dates: start: 20230808
  2. HIZENTRA [Suspect]
     Active Substance: HUMAN IMMUNOGLOBULIN G
     Indication: Off label use
  3. RITUXIMAB [Concomitant]
     Active Substance: RITUXIMAB
  4. PYRIDOSTIGMINE [Concomitant]
     Active Substance: PYRIDOSTIGMINE
  5. TACROLIMUS [Concomitant]
     Active Substance: TACROLIMUS
  6. RAMIPRIL [Concomitant]
     Active Substance: RAMIPRIL
  7. WARFARIN [Concomitant]
     Active Substance: WARFARIN
  8. PANTOPRAZOLE [Concomitant]
     Active Substance: PANTOPRAZOLE
  9. ROSUVASTATIN [Concomitant]
     Active Substance: ROSUVASTATIN
  10. PREDNISONE [Concomitant]
     Active Substance: PREDNISONE

REACTIONS (3)
  - Death [Fatal]
  - Injection site erythema [Unknown]
  - Off label use [Unknown]

NARRATIVE: CASE EVENT DATE: 20230808
